FAERS Safety Report 5323079-1 (Version None)
Quarter: 2007Q2

REPORT INFORMATION
  Report Type: 
  Country: None (occurrence: None)
  Receive Date: 20070507
  Receipt Date: 20070425
  Transmission Date: 20071010
  Serious: Yes (Hospitalization)
  Sender: FDA-Public Use
  Company Number: 233206K07USA

PATIENT
  Age: 44 Year
  Sex: Female

DRUGS (2)
  1. REBIF [Suspect]
     Indication: MULTIPLE SCLEROSIS
     Dosage: 44 MCG, 3 IN 1 WEEKS,  SUBCUTANEOUS
     Route: 058
     Dates: start: 20060807, end: 20070420
  2. LIPITOR [Concomitant]

REACTIONS (4)
  - APPETITE DISORDER [None]
  - JAUNDICE [None]
  - LIVER FUNCTION TEST NORMAL [None]
  - VOMITING [None]
